FAERS Safety Report 21629189 (Version 5)
Quarter: 2024Q3

REPORT INFORMATION
  Report Type: Spontaneous
  Country: IN (occurrence: IN)
  Receive Date: 20221122
  Receipt Date: 20240930
  Transmission Date: 20241017
  Serious: Yes (Other)
  Sender: PFIZER
  Company Number: IN-PFIZER INC-2020426091

PATIENT
  Age: 65 Year
  Sex: Female

DRUGS (7)
  1. SUTENT [Suspect]
     Active Substance: SUNITINIB MALATE
     Indication: Metastatic renal cell carcinoma
     Dosage: 50 MG, 1X/DAY (1-0-0)
     Route: 048
     Dates: start: 20201009
  2. SUTENT [Suspect]
     Active Substance: SUNITINIB MALATE
     Dosage: UNK
     Dates: end: 202107
  3. SUTENT [Suspect]
     Active Substance: SUNITINIB MALATE
     Dosage: UNK
     Dates: start: 202110
  4. SUTENT [Suspect]
     Active Substance: SUNITINIB MALATE
     Dosage: 37.5 MG, CYCLIC (1 -0 -0, 2 WEEKS ON AND 1 WEEK OFF, 1 IN 21 DAYS)
     Dates: start: 20210904, end: 2022
  5. SUTENT [Suspect]
     Active Substance: SUNITINIB MALATE
     Dosage: 25 MG, CYCLIC 1X/DAY (2 WEEKS ON AND 1 WEEK OFF) TO CONTINUE (CYCLE ONCE IN 21 DAYS)
     Route: 048
     Dates: start: 20221019
  6. SUTENT [Suspect]
     Active Substance: SUNITINIB MALATE
     Dosage: 25 MG, CYCLIC (1X/DAY, 10 DAYS ON AND 10 DAYS OFF)
     Route: 048
  7. ZOLEDRONIC ACID [Concomitant]
     Active Substance: ZOLEDRONIC ACID
     Dosage: 4 MG, CYCLIC (IN 100ML NS OVER 15 MINS ONCE IN 28 DAYS)
     Route: 042

REACTIONS (4)
  - Pericardial effusion [Recovered/Resolved]
  - Asthenia [Recovered/Resolved]
  - Stomatitis [Unknown]
  - Off label use [Unknown]

NARRATIVE: CASE EVENT DATE: 20210801
